FAERS Safety Report 5350816-2 (Version None)
Quarter: 2007Q2

REPORT INFORMATION
  Report Type: 
  Country: None (occurrence: None)
  Receive Date: 20070608
  Receipt Date: 20070530
  Transmission Date: 20071010
  Serious: Yes (Other)
  Sender: FDA-Public Use
  Company Number: US-JNJFOC-20070600182

PATIENT
  Age: 47 Year
  Sex: Female
  Weight: 54.43 kg

DRUGS (3)
  1. ORTHO-CEPT [Suspect]
     Indication: CONTRACEPTION
     Route: 048
     Dates: start: 20030101
  2. RENZAPRIDE [Concomitant]
     Indication: IRRITABLE BOWEL SYNDROME
     Route: 065
  3. ZYRTEC [Concomitant]
     Indication: DRUG USE FOR UNKNOWN INDICATION
     Route: 065

REACTIONS (2)
  - BIOPSY SKIN ABNORMAL [None]
  - URTICARIA [None]
